FAERS Safety Report 12089857 (Version 3)
Quarter: 2016Q2

REPORT INFORMATION
  Report Type: Report from Study
  Country: BE (occurrence: BE)
  Receive Date: 20160218
  Receipt Date: 20160414
  Transmission Date: 20160815
  Serious: Yes (Life-Threatening, Hospitalization)
  Sender: FDA-Public Use
  Company Number: BE-AMGEN-BELCT2016019606

PATIENT
  Age: 63 Year
  Sex: Male

DRUGS (22)
  1. SODIUM BICARBONATE. [Concomitant]
     Active Substance: SODIUM BICARBONATE
     Dosage: 1 G, UNK
     Route: 048
     Dates: start: 20160213, end: 20160216
  2. DEXAMETHASONE. [Suspect]
     Active Substance: DEXAMETHASONE
     Indication: PLASMA CELL MYELOMA
     Dosage: 40 MG, PER CHEMO REGIM
     Route: 048
     Dates: start: 20160122
  3. BEFACT [Concomitant]
     Dosage: 1 UNK
     Route: 048
     Dates: start: 2014
  4. URSOFALK [Concomitant]
     Active Substance: URSODIOL
     Dosage: 500 MG, UNK
     Route: 048
     Dates: start: 20160120
  5. CLEXANE [Concomitant]
     Active Substance: ENOXAPARIN SODIUM
     Dosage: 40 MG, UNK
     Route: 058
     Dates: start: 2015, end: 20160222
  6. AUGMENTIN [Concomitant]
     Active Substance: AMOXICILLIN\CLAVULANATE POTASSIUM
     Dosage: 2 G, UNK
     Dates: start: 20160202, end: 20160210
  7. NILSTAT [Concomitant]
     Active Substance: NYSTATIN
     Dosage: 1 UNK
     Dates: start: 2015, end: 20160202
  8. FASTURTEC [Concomitant]
     Active Substance: RASBURICASE
     Dosage: 15.8 MG, UNK
     Route: 042
     Dates: start: 20160211, end: 20160211
  9. RIVOTRIL [Concomitant]
     Active Substance: CLONAZEPAM
     Dosage: 0.5 MG, UNK
     Route: 048
     Dates: start: 2014
  10. SPIRONOLACTONE. [Concomitant]
     Active Substance: SPIRONOLACTONE
     Dosage: 12.5 MG, UNK
     Route: 048
     Dates: start: 20160120, end: 20160202
  11. LITICAN [Concomitant]
     Active Substance: ALIZAPRIDE HYDROCHLORIDE
     Dosage: 50-100 MG, UNK
     Route: 042
     Dates: start: 20160208, end: 20160221
  12. ACICLOVIR [Concomitant]
     Active Substance: ACYCLOVIR
     Dosage: 400-800 MG, UNK
     Route: 048
     Dates: start: 2014, end: 20160203
  13. FORLAX [Concomitant]
     Active Substance: POLYETHYLENE GLYCOL 4000
     Dosage: 10 G, UNK
     Route: 048
     Dates: start: 20160120
  14. LASIX [Concomitant]
     Active Substance: FUROSEMIDE
     Dosage: 20-40 MG, UNK
     Route: 042
     Dates: start: 20160203, end: 20160219
  15. PARACETAMOL [Concomitant]
     Active Substance: ACETAMINOPHEN
     Dosage: 1 G, UNK
     Dates: start: 2015, end: 20160218
  16. REDOMEX [Concomitant]
     Active Substance: AMITRIPTYLINE HYDROCHLORIDE
     Dosage: 25 MG, UNK
     Route: 048
     Dates: start: 2014
  17. SELOZOK [Concomitant]
     Active Substance: METOPROLOL SUCCINATE
     Dosage: 95 MG, UNK
     Route: 048
     Dates: start: 2014
  18. HYDROCORTISONE. [Concomitant]
     Active Substance: HYDROCORTISONE
     Dosage: 1 UNK
     Route: 061
     Dates: start: 2015, end: 20160202
  19. LIDOCAIN [Concomitant]
     Active Substance: LIDOCAINE
     Dosage: 15 ML, UNK
     Dates: start: 2015, end: 20160202
  20. ALLOPURINOL. [Concomitant]
     Active Substance: ALLOPURINOL
     Dosage: 100 MG, UNK
     Route: 048
     Dates: start: 20160202
  21. CARFILZOMIB [Suspect]
     Active Substance: CARFILZOMIB
     Indication: PLASMA CELL MYELOMA
     Dosage: 134.4 MG, PER CHEMO REGIM
     Route: 042
     Dates: start: 20160202
  22. PANTOMED [Concomitant]
     Active Substance: DEXPANTHENOL
     Dosage: 40 MG, UNK
     Route: 048
     Dates: start: 20160120

REACTIONS (2)
  - Sepsis [Recovered/Resolved]
  - Otitis media acute [Recovered/Resolved]

NARRATIVE: CASE EVENT DATE: 20160216
